FAERS Safety Report 6396366-6 (Version None)
Quarter: 2009Q4

REPORT INFORMATION
  Report Type: 
  Country: None (occurrence: None)
  Receive Date: 20091012
  Receipt Date: 20091006
  Transmission Date: 20100525
  Serious: Yes (Death)
  Sender: FDA-Public Use
  Company Number: PHEH2009US06781

PATIENT
  Sex: Female

DRUGS (1)
  1. EXJADE [Suspect]
     Indication: MYELODYSPLASTIC SYNDROME
     Dosage: 1500 MG, QD
     Route: 048
     Dates: start: 20071001, end: 20090519

REACTIONS (6)
  - ACUTE MYELOID LEUKAEMIA [None]
  - ARRHYTHMIA SUPRAVENTRICULAR [None]
  - BLOOD PRESSURE DECREASED [None]
  - CARDIAC ARREST [None]
  - LOSS OF CONSCIOUSNESS [None]
  - PALLIATIVE CARE [None]
